FAERS Safety Report 15856994 (Version 4)
Quarter: 2020Q1

REPORT INFORMATION
  Report Type: Report from Study
  Country: DE (occurrence: DE)
  Receive Date: 20190123
  Receipt Date: 20200101
  Transmission Date: 20200409
  Serious: Yes (Hospitalization, Other)
  Sender: FDA-Public Use
  Company Number: DE-ROCHE-2244436

PATIENT
  Age: 56 Year
  Sex: Male
  Weight: 82 kg

DRUGS (24)
  1. RIBAVIRIN. [Suspect]
     Active Substance: RIBAVIRIN
     Indication: CHRONIC HEPATITIS C
     Route: 048
     Dates: start: 20150701
  2. DIGITOXIN [Concomitant]
     Active Substance: DIGITOXIN
     Route: 065
     Dates: start: 20150709
  3. BACTRIM [Concomitant]
     Active Substance: SULFAMETHOXAZOLE\TRIMETHOPRIM
     Route: 065
     Dates: start: 20160513
  4. CARVEDILOL. [Concomitant]
     Active Substance: CARVEDILOL
     Route: 065
  5. CARVEDILOL. [Concomitant]
     Active Substance: CARVEDILOL
     Route: 065
  6. MAGNESIUM VERLA [MAGNESIUM] [Concomitant]
     Dosage: UNK
     Route: 065
     Dates: start: 20150713
  7. ENOXAPARIN [Concomitant]
     Active Substance: ENOXAPARIN
     Route: 065
  8. RIBAVIRIN. [Suspect]
     Active Substance: RIBAVIRIN
     Route: 048
     Dates: start: 20150730, end: 20150923
  9. VALCYTE [Concomitant]
     Active Substance: VALGANCICLOVIR HYDROCHLORIDE
     Route: 065
     Dates: start: 20160513, end: 20160817
  10. DECOSTRIOL [Concomitant]
     Active Substance: CALCITRIOL
     Route: 065
  11. CLEXANE [Concomitant]
     Active Substance: ENOXAPARIN SODIUM
     Route: 065
     Dates: start: 20150701
  12. EPLERENONA [Concomitant]
     Active Substance: EPLERENONE
     Route: 065
  13. ELIQUIS [Concomitant]
     Active Substance: APIXABAN
     Dosage: DAILY DOSE: 10 MG MILLIGRAM(S) EVERY DAY
     Route: 065
     Dates: start: 20150625
  14. CANDESARTAN. [Concomitant]
     Active Substance: CANDESARTAN
     Route: 065
  15. PANTOZOL [Concomitant]
     Active Substance: PANTOPRAZOLE SODIUM
     Route: 065
     Dates: start: 20160512
  16. SPIRONOLACTON [Concomitant]
     Active Substance: SPIRONOLACTONE
     Route: 065
     Dates: start: 20150701
  17. LEDIPASVIR;SOFOSBUVIR [Suspect]
     Active Substance: LEDIPASVIR\SOFOSBUVIR
     Indication: CHRONIC HEPATITIS C
     Route: 048
     Dates: start: 20150701, end: 20150923
  18. VITAMIN B1 [Concomitant]
     Active Substance: THIAMINE HYDROCHLORIDE
     Route: 065
  19. BISOPROLOL [Concomitant]
     Active Substance: BISOPROLOL
     Route: 065
  20. ELIQUIS [Concomitant]
     Active Substance: APIXABAN
     Dosage: 5 MG, BID
     Route: 065
     Dates: start: 20150625
  21. TORASEMID [Concomitant]
     Active Substance: TORSEMIDE
     Route: 065
  22. CETIRIZIN [Concomitant]
     Active Substance: CETIRIZINE HYDROCHLORIDE
     Route: 065
     Dates: start: 20150713
  23. TORASEMID [Concomitant]
     Active Substance: TORSEMIDE
     Route: 065
  24. NOVODIGAL (.BETA.-ACETYLDIGOXIN) [Concomitant]
     Active Substance: .BETA.-ACETYLDIGOXIN
     Route: 065
     Dates: end: 20150708

REACTIONS (7)
  - Liver transplant [Recovering/Resolving]
  - Oesophageal varices haemorrhage [Recovered/Resolved]
  - Atrial fibrillation [Unknown]
  - Hepatocellular carcinoma [Not Recovered/Not Resolved]
  - Haematemesis [Unknown]
  - Gout [Recovered/Resolved]
  - Cardioversion [Unknown]

NARRATIVE: CASE EVENT DATE: 20150714
